FAERS Safety Report 5471865-X (Version None)
Quarter: 2007Q3

REPORT INFORMATION
  Report Type: 
  Country: None (occurrence: None)
  Receive Date: 20070928
  Receipt Date: 20070712
  Transmission Date: 20080115
  Serious: No
  Sender: FDA-Public Use
  Company Number: US-BRISTOL-MYERS SQUIBB COMPANY-13843743

PATIENT
  Sex: Female
  Weight: 84 kg

DRUGS (1)
  1. DEFINITY [Suspect]
     Indication: STRESS ECHOCARDIOGRAM
     Dosage: 1 CC OF DILUTED DOSE: 2CC OF PERFLUTREN IN 8 CC OF NORMAL SALINE
     Dates: start: 20070712, end: 20070712

REACTIONS (2)
  - CHEST DISCOMFORT [None]
  - DYSPNOEA [None]
